FAERS Safety Report 10174098 (Version 5)
Quarter: 2015Q2

REPORT INFORMATION
  Report Type: Report from Study
  Country: CL (occurrence: CL)
  Receive Date: 20140515
  Receipt Date: 20150520
  Transmission Date: 20150821
  Serious: Yes (Life-Threatening, Other)
  Sender: FDA-Public Use
  Company Number: CL-BRISTOL-MYERS SQUIBB COMPANY-20724415

PATIENT
  Age: 84 Year
  Sex: Female

DRUGS (2)
  1. LOSARTAN [Concomitant]
     Active Substance: LOSARTAN
     Indication: PRODUCT USED FOR UNKNOWN INDICATION
     Route: 065
  2. ABATACEPT [Suspect]
     Active Substance: ABATACEPT
     Indication: RHEUMATOID ARTHRITIS
     Dosage: INTERRUPTED ON : 22JUN14,3 VIALS
     Route: 042
     Dates: start: 20140328

REACTIONS (6)
  - Gastric infection [Unknown]
  - Blood glucose increased [Unknown]
  - Seizure [Recovered/Resolved]
  - Abdominal pain upper [Unknown]
  - Dermatitis allergic [Unknown]
  - Fatigue [Unknown]

NARRATIVE: CASE EVENT DATE: 2014
